FAERS Safety Report 10173023 (Version 1)
Quarter: 2014Q2

REPORT INFORMATION
  Report Type: Spontaneous
  Country: SE (occurrence: None)
  Receive Date: 20140513
  Receipt Date: 20140513
  Transmission Date: 20141212
  Serious: Yes (Death, Other)
  Sender: FDA-Public Use
  Company Number: 2014SK0059

PATIENT
  Sex: Male

DRUGS (8)
  1. AMMONAPS [Suspect]
     Indication: ORNITHINE TRANSCARBAMOYLASE DEFICIENCY
     Dosage: 100-350 MG/KG/DAY
     Route: 048
     Dates: start: 200804
  2. ARGININ (ARGININE HYDROCHLORIDE) [Concomitant]
  3. NATRIUM BENZOATE (SODIUM BENZOATE) [Concomitant]
  4. PARENTERAL FEEDING (FAT, AMINOACIDS, GLUCOSE, VITAMINS, MICROELEMENTS) (SOLUTIONS FOR PARENTERAL NUTRITION) (FAT, AMINOACIDS, GLUCOSE, VITAMINS, MICROELEMENTS) [Concomitant]
  5. HELICIDE (OMEPRAZOLE) [Concomitant]
  6. FLUCONASOLE (FLUCONAZOLE) [Concomitant]
  7. VANKOMYCINE (VANCOMYCIN HYDROCHLORIDE) [Concomitant]
  8. COLIMICINE (COLISTIN SULFATE) [Concomitant]

REACTIONS (3)
  - Post procedural sepsis [None]
  - Hyperglycaemia [None]
  - Gastrooesophageal reflux disease [None]
